FAERS Safety Report 7466333-X (Version None)
Quarter: 2011Q2

REPORT INFORMATION
  Report Type: 
  Country: None (occurrence: None)
  Receive Date: 20110509
  Receipt Date: 20100721
  Transmission Date: 20111010
  Serious: No
  Sender: FDA-Public Use
  Company Number: US-ALEXION-A201000866

PATIENT
  Sex: Female

DRUGS (6)
  1. BENADRYL [Concomitant]
     Indication: PREMEDICATION
     Dosage: GIVEN PRIOR TO SOLIRIS INFUSIONS
  2. SOLIRIS [Suspect]
     Indication: PAROXYSMAL NOCTURNAL HAEMOGLOBINURIA
     Dosage: 600 MG, QW
     Route: 042
  3. ANTI-THYMOCYTE GLOBULIN RABBIT NOS [Suspect]
     Indication: APLASTIC ANAEMIA
  4. STEROID [Concomitant]
     Indication: PREMEDICATION
     Dosage: GIVEN PRIOR TO SOLIRIS INFUSIONS
  5. SOLIRIS [Suspect]
     Dosage: 900 MG, Q2W
     Route: 042
  6. CYCLOSPORINE [Suspect]
     Indication: APLASTIC ANAEMIA

REACTIONS (2)
  - HYPERSENSITIVITY [None]
  - HEADACHE [None]
